FAERS Safety Report 16339229 (Version 1)
Quarter: 2019Q2

REPORT INFORMATION
  Report Type: Spontaneous
  Country: US (occurrence: US)
  Receive Date: 20190521
  Receipt Date: 20190521
  Transmission Date: 20190711
  Serious: No
  Sender: FDA-Public Use
  Company Number: US-AMAG PHARMACEUTICALS, INC.-AMAG201900796

PATIENT
  Sex: Female

DRUGS (2)
  1. INTRAROSA [Suspect]
     Active Substance: PRASTERONE
     Indication: DYSPAREUNIA
     Dosage: 6.5 MG, QD
     Route: 067
     Dates: start: 201812
  2. INTRAROSA [Suspect]
     Active Substance: PRASTERONE
     Indication: FEMALE ORGASMIC DISORDER

REACTIONS (1)
  - Headache [Recovered/Resolved]
